FAERS Safety Report 9303964 (Version 1)
Quarter: 2013Q2

REPORT INFORMATION
  Report Type: Spontaneous
  Country: FR (occurrence: FR)
  Receive Date: 20130522
  Receipt Date: 20130522
  Transmission Date: 20140414
  Serious: Yes (Hospitalization)
  Sender: FDA-Public Use
  Company Number: FR-ASTRAZENECA-2013SE33622

PATIENT
  Age: 49 Year
  Sex: Male

DRUGS (7)
  1. INEXIUM [Suspect]
     Route: 048
     Dates: start: 20130306, end: 20130312
  2. DOLIPRANE [Suspect]
     Indication: PAIN
     Route: 048
     Dates: start: 20130305
  3. BIPROFENID SR [Suspect]
     Indication: TRACHEITIS
     Route: 048
     Dates: start: 20130306, end: 20130312
  4. XARELTO [Suspect]
     Indication: PULMONARY EMBOLISM
     Route: 048
     Dates: start: 20130305, end: 20130315
  5. AMOXICILLIN/CLAVULANIC ACID [Suspect]
     Indication: TRACHEITIS
     Dosage: 1 GRAM / 125 MGRAM PER DOSE, THREE DOSES PER DAY
     Route: 048
     Dates: start: 20130306, end: 20130312
  6. AMLODIPINE [Suspect]
     Indication: PULMONARY EMBOLISM
     Route: 048
     Dates: start: 20130306
  7. JOSACINE [Concomitant]
     Dates: start: 20130313

REACTIONS (4)
  - Haemothorax [Recovering/Resolving]
  - Pleural effusion [Recovering/Resolving]
  - Chest pain [Recovered/Resolved]
  - Anaemia [None]
